FAERS Safety Report 8839540 (Version 2)
Quarter: 2012Q4

REPORT INFORMATION
  Report Type: 
  Country: FR (occurrence: FR)
  Receive Date: 20121015
  Receipt Date: 20121025
  Transmission Date: 20130627
  Serious: Yes (Death, Hospitalization, Other)
  Sender: FDA-Public Use
  Company Number: PHHY2012FR090662

PATIENT
  Age: 87 Year
  Sex: Female

DRUGS (15)
  1. LEVOTHYROX [Concomitant]
     Dosage: 100 ug daily every other day
     Route: 048
     Dates: start: 200301
  2. LEVOTHYROX [Concomitant]
     Dosage: 125 ug daily every other day
     Route: 048
  3. PRITOR [Concomitant]
     Dosage: 1 DF in the morning
     Route: 048
     Dates: start: 200303
  4. TAHOR [Concomitant]
     Dosage: 1DF in the evening
     Route: 048
     Dates: start: 2004
  5. DAFALGAN [Concomitant]
     Route: 048
     Dates: start: 200501
  6. CALCIDOSE VITAMINE D [Concomitant]
     Dosage: 1 DF, BID
     Route: 048
     Dates: start: 200609
  7. PARIET [Concomitant]
     Dosage: 1 DF in the evening
     Route: 048
     Dates: start: 200704
  8. ALDALIX [Concomitant]
     Dosage: 1 DF daily in morning
     Route: 048
     Dates: start: 200809
  9. COUMADIN [Concomitant]
     Dosage: 2.5DF or 3DF every other day
     Route: 048
     Dates: start: 201002
  10. NEURONTIN [Concomitant]
     Dosage: 800 mg, TID
     Route: 048
     Dates: start: 20100705
  11. NEURONTIN [Concomitant]
     Dosage: 400 mg, TID
     Dates: start: 20120621
  12. HEMIGOXINE NATIVELLE [Concomitant]
     Dosage: 1 DF daily in the morning
     Route: 048
     Dates: start: 201103
  13. NEBILOX [Concomitant]
     Dosage: 2.5 mg daily
     Route: 048
     Dates: start: 201103
  14. TEGRETOL LP [Suspect]
     Dosage: 600 mg daily
     Route: 048
     Dates: start: 20101222, end: 20120621
  15. TEGRETOL LP [Suspect]
     Dosage: 1.5 DF, TID
     Route: 048
     Dates: start: 20120621

REACTIONS (14)
  - Death [Fatal]
  - Acute respiratory distress syndrome [Unknown]
  - Memory impairment [Unknown]
  - N-terminal prohormone brain natriuretic peptide increased [Unknown]
  - Fall [Recovered/Resolved with Sequelae]
  - Pulmonary contusion [Unknown]
  - Haemothorax [Unknown]
  - Rib fracture [Not Recovered/Not Resolved]
  - Musculoskeletal chest pain [Unknown]
  - Chest injury [Unknown]
  - Blood creatine phosphokinase increased [Unknown]
  - Tremor [Unknown]
  - Drug level increased [Unknown]
  - Blood pressure increased [Unknown]
